FAERS Safety Report 9172267 (Version 1)
Quarter: 2013Q1

REPORT INFORMATION
  Report Type: Spontaneous
  Country: US (occurrence: US)
  Receive Date: 20130319
  Receipt Date: 20130319
  Transmission Date: 20140127
  Serious: No
  Sender: FDA-Public Use
  Company Number: US-ASTRAZENECA-2013SE14879

PATIENT
  Age: 53 Year
  Sex: Female

DRUGS (3)
  1. TOPROL XL [Suspect]
     Indication: BLOOD PRESSURE
     Route: 048
  2. TOPROL XL [Suspect]
     Indication: BLOOD PRESSURE
     Route: 048
  3. TOPROL XL [Suspect]
     Indication: BLOOD PRESSURE
     Route: 048
     Dates: start: 20130302

REACTIONS (4)
  - Blood pressure increased [Recovering/Resolving]
  - Blood pressure inadequately controlled [Recovering/Resolving]
  - Headache [Recovered/Resolved]
  - Drug ineffective [Unknown]
